APPROVED DRUG PRODUCT: TRIAMCINOLONE ACETONIDE
Active Ingredient: TRIAMCINOLONE ACETONIDE
Strength: 0.1%
Dosage Form/Route: CREAM;TOPICAL
Application: A208848 | Product #001 | TE Code: AT
Applicant: ENCUBE ETHICALS PRIVATE LTD
Approved: Sep 18, 2017 | RLD: No | RS: No | Type: RX